FAERS Safety Report 18253389 (Version 1)
Quarter: 2020Q3

REPORT INFORMATION
  Report Type: Spontaneous
  Country: US (occurrence: US)
  Receive Date: 20200910
  Receipt Date: 20200910
  Transmission Date: 20201103
  Serious: Yes (Other)
  Sender: FDA-Public Use
  Company Number: US-TEVA-2020-US-1825609

PATIENT
  Age: 62 Year
  Sex: Female

DRUGS (1)
  1. MODAFINIL. [Suspect]
     Active Substance: MODAFINIL
     Indication: NARCOLEPSY
     Dosage: TAKING ONE?HALF TABLET PER DAY
     Route: 065

REACTIONS (8)
  - Lichen planopilaris [Not Recovered/Not Resolved]
  - Hyperhidrosis [Not Recovered/Not Resolved]
  - Reynold^s syndrome [Not Recovered/Not Resolved]
  - Peripheral coldness [Recovering/Resolving]
  - Alopecia [Not Recovered/Not Resolved]
  - Wrong technique in product usage process [Unknown]
  - Muscle atrophy [Not Recovered/Not Resolved]
  - Muscle spasms [Not Recovered/Not Resolved]
